FAERS Safety Report 15130588 (Version 3)
Quarter: 2018Q3

REPORT INFORMATION
  Report Type: Spontaneous
  Country: FI (occurrence: FI)
  Receive Date: 20180711
  Receipt Date: 20180817
  Transmission Date: 20181010
  Serious: Yes (Hospitalization, Other)
  Sender: FDA-Public Use
  Company Number: FI-PFIZER INC-2018272960

PATIENT
  Age: 60 Year
  Sex: Female

DRUGS (3)
  1. ZITHROMAX [Suspect]
     Active Substance: AZITHROMYCIN DIHYDRATE
     Indication: BRONCHIECTASIS
     Dosage: UNK
     Dates: start: 200805, end: 201311
  2. PULMICORT TURBUHALER [Concomitant]
     Active Substance: BUDESONIDE
     Dosage: UNK
     Dates: start: 2006
  3. ATRODUAL [Concomitant]
     Dosage: UNK
     Dates: start: 2006

REACTIONS (8)
  - Hypoacusis [Unknown]
  - Visual impairment [Unknown]
  - Tympanic membrane perforation [Unknown]
  - Ocular hypertension [Unknown]
  - Incorrect drug administration duration [Unknown]
  - Cataract nuclear [Unknown]
  - Exfoliation glaucoma [Not Recovered/Not Resolved]
  - Anosmia [Unknown]

NARRATIVE: CASE EVENT DATE: 2012
